FAERS Safety Report 14018732 (Version 1)
Quarter: 2017Q3

REPORT INFORMATION
  Report Type: Spontaneous
  Country: US (occurrence: US)
  Receive Date: 20170928
  Receipt Date: 20170928
  Transmission Date: 20171128
  Serious: Yes (Life-Threatening, Hospitalization, Disabling, Other)
  Sender: FDA-Public Use
  Company Number: None

PATIENT
  Age: 56 Year
  Sex: Female
  Weight: 101.25 kg

DRUGS (10)
  1. CRESTOR [Concomitant]
     Active Substance: ROSUVASTATIN CALCIUM
  2. SEROQUEL [Concomitant]
     Active Substance: QUETIAPINE FUMARATE
  3. PAXIL [Concomitant]
     Active Substance: PAROXETINE HYDROCHLORIDE
  4. TOPAMAX [Concomitant]
     Active Substance: TOPIRAMATE
  5. LADUTA [Concomitant]
  6. KLONOPIN [Concomitant]
     Active Substance: CLONAZEPAM
  7. METFORMIN [Concomitant]
     Active Substance: METFORMIN HYDROCHLORIDE
  8. PEPCID [Concomitant]
     Active Substance: FAMOTIDINE
  9. CYMBALTA [Suspect]
     Active Substance: DULOXETINE HYDROCHLORIDE
     Indication: DEPRESSION
     Dosage: ?          QUANTITY:30 CAPSULE(S);?
     Route: 048
     Dates: start: 20160422, end: 20160801
  10. LIISNIPRIL [Concomitant]

REACTIONS (11)
  - Paraesthesia [None]
  - Disorientation [None]
  - Paralysis [None]
  - Thinking abnormal [None]
  - Palpitations [None]
  - Tinnitus [None]
  - Nightmare [None]
  - Speech disorder [None]
  - Confusional state [None]
  - Tremor [None]
  - Gait disturbance [None]

NARRATIVE: CASE EVENT DATE: 20160722
